FAERS Safety Report 25899165 (Version 1)
Quarter: 2025Q4

REPORT INFORMATION
  Report Type: Spontaneous
  Country: EU (occurrence: EU)
  Receive Date: 20251009
  Receipt Date: 20251009
  Transmission Date: 20260118
  Serious: Yes (Hospitalization)
  Sender: CHEPLAPHARM
  Company Number: EU-CHEPLA-2025011566

PATIENT
  Sex: Female

DRUGS (1)
  1. CLONAZEPAM [Suspect]
     Active Substance: CLONAZEPAM
     Dosage: 4 DROPS IN THE MORNING AND 5 IN THE EVENING
     Route: 048
     Dates: start: 202505

REACTIONS (6)
  - Gastrointestinal disorder [Unknown]
  - Gastrointestinal pain [Unknown]
  - Aerophagia [Unknown]
  - Constipation [Unknown]
  - Abnormal loss of weight [Unknown]
  - Feeding disorder [Unknown]

NARRATIVE: CASE EVENT DATE: 20250820
